FAERS Safety Report 9402428 (Version 1)
Quarter: 2013Q3

REPORT INFORMATION
  Report Type: Spontaneous
  Country: US (occurrence: US)
  Receive Date: 20130716
  Receipt Date: 20130716
  Transmission Date: 20140515
  Serious: Yes (Death)
  Sender: FDA-Public Use
  Company Number: US-PFIZER INC-2013205965

PATIENT
  Age: 54 Year
  Sex: Female

DRUGS (2)
  1. INLYTA [Suspect]
     Indication: RENAL CANCER
     Dosage: 5 MG, UNK
     Dates: start: 20121129
  2. INLYTA [Suspect]
     Indication: MALIGNANT URINARY TRACT NEOPLASM

REACTIONS (1)
  - Death [Fatal]
